FAERS Safety Report 11688122 (Version 1)
Quarter: 2015Q4

REPORT INFORMATION
  Report Type: Spontaneous
  Country: US (occurrence: US)
  Receive Date: 20151030
  Receipt Date: 20151030
  Transmission Date: 20160304
  Serious: No
  Sender: FDA-Public Use
  Company Number: US-ASTRAZENECA-2015SF02271

PATIENT
  Age: 23132 Day
  Sex: Female
  Weight: 59 kg

DRUGS (2)
  1. TUDORZA PRESSAIR [Suspect]
     Active Substance: ACLIDINIUM BROMIDE
     Indication: CHRONIC OBSTRUCTIVE PULMONARY DISEASE
     Route: 055
     Dates: start: 2015
  2. SPIRIVA [Concomitant]
     Active Substance: TIOTROPIUM BROMIDE MONOHYDRATE

REACTIONS (9)
  - Condition aggravated [Unknown]
  - Drug dose omission [Unknown]
  - Product quality issue [Unknown]
  - Malaise [Unknown]
  - Hypersensitivity [Unknown]
  - Dyspnoea [Unknown]
  - Asthma [Unknown]
  - Gait disturbance [Unknown]
  - Pneumonitis [Unknown]

NARRATIVE: CASE EVENT DATE: 201510
